FAERS Safety Report 4342671-4 (Version None)
Quarter: 2004Q2

REPORT INFORMATION
  Report Type: 
  Country: None (occurrence: None)
  Receive Date: 20040416
  Receipt Date: 20040408
  Transmission Date: 20050107
  Serious: Yes (Disabling)
  Sender: FDA-Public Use
  Company Number: 2004US000426

PATIENT
  Age: 3 Year
  Sex: Female

DRUGS (23)
  1. AMBISOME [Suspect]
     Dosage: UNK MG, UID/QD, INTRAVENOUS; 40.00 MG, UID/QD, INTRAVENOUS; 40.00 MG, UID/QD, INTRAVENOUS
     Route: 042
     Dates: start: 20030623, end: 20030625
  2. AMBISOME [Suspect]
     Dosage: UNK MG, UID/QD, INTRAVENOUS; 40.00 MG, UID/QD, INTRAVENOUS; 40.00 MG, UID/QD, INTRAVENOUS
     Route: 042
     Dates: start: 20030623, end: 20030707
  3. AMBISOME [Suspect]
     Dosage: UNK MG, UID/QD, INTRAVENOUS; 40.00 MG, UID/QD, INTRAVENOUS; 40.00 MG, UID/QD, INTRAVENOUS
     Route: 042
     Dates: start: 20030704, end: 20040707
  4. CYTARABINE [Suspect]
     Indication: ACUTE MYELOID LEUKAEMIA
     Dosage: 34.00 MG, UID/QD, INTRAVENOUS; 34.00 MG, UID/QD, INTRAVENOUS
     Route: 042
     Dates: start: 20030620, end: 20030620
  5. CYTARABINE [Suspect]
     Indication: ACUTE MYELOID LEUKAEMIA
     Dosage: 34.00 MG, UID/QD, INTRAVENOUS; 34.00 MG, UID/QD, INTRAVENOUS
     Route: 042
     Dates: start: 20030621, end: 20030625
  6. FILGRASTIM (FILGRASTIM) INJECTION [Suspect]
     Dosage: 110.00 MG, UID/QD, INTRAVENOUS; 70.00 UG, UID/QD, INTRAVENOUS
     Route: 042
     Dates: start: 20030621, end: 20030625
  7. FILGRASTIM (FILGRASTIM) INJECTION [Suspect]
     Dosage: 110.00 MG, UID/QD, INTRAVENOUS; 70.00 UG, UID/QD, INTRAVENOUS
     Route: 042
     Dates: start: 20030705, end: 20030707
  8. FLUDARA [Suspect]
     Indication: ACUTE MYELOID LEUKAEMIA
     Dosage: 17.00 MG, UID/QD, INTRAVENOUS
     Route: 042
     Dates: start: 20030621, end: 20030625
  9. DAUNOXOME [Concomitant]
  10. ZOPHREN (ONDANSETRON HYDROCHLORIDE) [Concomitant]
  11. CEFTAZIDIME PENTAHYDRATE [Concomitant]
  12. AMIKACIN [Concomitant]
  13. VANCOMYCIN [Concomitant]
  14. PERFALGAN [Concomitant]
  15. FASTURTEC (RASBURICASE) [Concomitant]
  16. ZOVIRAX [Concomitant]
  17. HEPARIN [Concomitant]
  18. ARTIFICIAL TEARS [Concomitant]
  19. CHIBROCADRON (DEXAMETHASONE SODIUM PHOSPHATE) [Concomitant]
  20. POLARAMINE [Concomitant]
  21. PLITICAN (ALIZAPRIDE HYDROCHLORIDE) [Concomitant]
  22. NICARDIPINE HCL [Concomitant]
  23. BACTRIM [Concomitant]

REACTIONS (4)
  - BLINDNESS [None]
  - NECROSIS [None]
  - NUCLEAR MAGNETIC RESONANCE IMAGING BRAIN ABNORMAL [None]
  - OPTIC NERVE DISORDER [None]
